FAERS Safety Report 8729931 (Version 6)
Quarter: 2013Q1

REPORT INFORMATION
  Report Type: Report from Study
  Country: GB (occurrence: GB)
  Receive Date: 20120817
  Receipt Date: 20130211
  Transmission Date: 20140127
  Serious: Yes (Congenital Anomaly)
  Sender: FDA-Public Use
  Company Number: GB-B.I. PHARMACEUTICALS,INC./RIDGEFIELD-2012-BP-18958BP

PATIENT
  Age: 0 Year
  Sex: Male
  Weight: 3.1 kg

DRUGS (6)
  1. VIRAMUNE [Suspect]
     Indication: MATERNAL EXPOSURE DURING PREGNANCY
     Route: 064
     Dates: end: 20100610
  2. RALTEGRAVIR [Concomitant]
     Indication: MATERNAL EXPOSURE DURING PREGNANCY
     Dosage: 800 MG
     Route: 064
     Dates: start: 20100610
  3. ZIDOVUDINE [Concomitant]
     Indication: MATERNAL EXPOSURE DURING PREGNANCY
     Route: 064
     Dates: end: 20100610
  4. LAMIVUDINE [Concomitant]
     Indication: MATERNAL EXPOSURE DURING PREGNANCY
     Route: 064
     Dates: end: 20100610
  5. LOPINAVIR+RITONAVIR [Concomitant]
     Indication: MATERNAL EXPOSURE DURING PREGNANCY
     Route: 064
     Dates: start: 20100610
  6. TENOFOVIR DISOPROXIL FUMARATE [Concomitant]
     Indication: MATERNAL EXPOSURE DURING PREGNANCY
     Route: 064
     Dates: start: 20100610

REACTIONS (1)
  - Intestinal malrotation [Unknown]
